FAERS Safety Report 19486182 (Version 1)
Quarter: 2021Q3

REPORT INFORMATION
  Report Type: Report from Study
  Country: GT (occurrence: GT)
  Receive Date: 20210702
  Receipt Date: 20210702
  Transmission Date: 20211014
  Serious: Yes (Death)
  Sender: FDA-Public Use
  Company Number: NVSC2021GT148850

PATIENT
  Age: 101 Year
  Sex: Female

DRUGS (1)
  1. DIOVAN [Suspect]
     Active Substance: VALSARTAN
     Indication: PRODUCT USED FOR UNKNOWN INDICATION
     Dosage: 320 MG (START DATE: APPROXIMATELY 8 YEARS AGO)
     Route: 065
     Dates: end: 20210111

REACTIONS (1)
  - Death [Fatal]
